FAERS Safety Report 23956012 (Version 1)
Quarter: 2024Q2

REPORT INFORMATION
  Report Type: Spontaneous
  Country: US (occurrence: US)
  Receive Date: 20240610
  Receipt Date: 20240610
  Transmission Date: 20240716
  Serious: No
  Sender: FDA-Public Use
  Company Number: US-002147023-NVSC2024US120882

PATIENT
  Sex: Female

DRUGS (1)
  1. LEQVIO [Suspect]
     Active Substance: INCLISIRAN SODIUM
     Indication: Hyperchloraemia
     Dosage: 284 MG/KG(MILIGRAM/KILOGRAM) 0, 3 AND EVERY 6 MONTHS
     Route: 058
     Dates: start: 2022, end: 20240605

REACTIONS (1)
  - Drug ineffective [Not Recovered/Not Resolved]
